FAERS Safety Report 22082909 (Version 1)
Quarter: 2023Q1

REPORT INFORMATION
  Report Type: Spontaneous
  Country: FR (occurrence: FR)
  Receive Date: 20230310
  Receipt Date: 20230310
  Transmission Date: 20230418
  Serious: Yes (Hospitalization, Other)
  Sender: FDA-Public Use
  Company Number: None

PATIENT

DRUGS (5)
  1. ACETAMINOPHEN [Suspect]
     Active Substance: ACETAMINOPHEN
     Indication: Toxicity to various agents
     Dosage: 40 G, TOTAL
     Route: 048
     Dates: start: 20200806, end: 20200806
  2. IBUPROFEN [Suspect]
     Active Substance: IBUPROFEN
     Indication: Toxicity to various agents
     Dosage: 18 G, TOTAL
     Route: 048
     Dates: start: 20200806, end: 20200806
  3. LORMETAZEPAM [Suspect]
     Active Substance: LORMETAZEPAM
     Indication: Toxicity to various agents
     Dosage: 28 MG, TOTAL
     Route: 048
     Dates: start: 20200806, end: 20200806
  4. LEVOMEPROMAZINE [Suspect]
     Active Substance: LEVOMEPROMAZINE
     Indication: Toxicity to various agents
     Dosage: 0.5 G, TOTAL
     Route: 048
     Dates: start: 20200806, end: 20200806
  5. VENLAFAXINE [Suspect]
     Active Substance: VENLAFAXINE HYDROCHLORIDE
     Indication: Toxicity to various agents
     Dosage: 2250 MG, TOTAL
     Route: 048
     Dates: start: 20200806, end: 20200806

REACTIONS (5)
  - Hepatic cytolysis [Recovered/Resolved]
  - Analgesic drug level increased [Recovered/Resolved]
  - Acute kidney injury [Recovered/Resolved]
  - Intentional overdose [Recovered/Resolved]
  - Somnolence [Recovered/Resolved]

NARRATIVE: CASE EVENT DATE: 20200807
